FAERS Safety Report 5647133-X (Version None)
Quarter: 2008Q1

REPORT INFORMATION
  Report Type: 
  Country: None (occurrence: None)
  Receive Date: 20080131
  Receipt Date: 20071205
  Transmission Date: 20080703
  Serious: No
  Sender: FDA-Public Use
  Company Number: 163-21880-07120302

PATIENT
  Age: 79 Year
  Sex: Male

DRUGS (2)
  1. REVLIMID [Suspect]
     Indication: MULTIPLE MYELOMA
     Dosage: X21D/28D, ORAL; 15 MG, X21D/28D, ORAL
     Route: 048
     Dates: start: 20071012, end: 20071201
  2. REVLIMID [Suspect]
     Indication: MULTIPLE MYELOMA
     Dosage: X21D/28D, ORAL; 15 MG, X21D/28D, ORAL
     Route: 048
     Dates: start: 20071201

REACTIONS (4)
  - CONSTIPATION [None]
  - DIZZINESS [None]
  - DRY MOUTH [None]
  - MUSCLE SPASMS [None]
